FAERS Safety Report 13461202 (Version 1)
Quarter: 2017Q2

REPORT INFORMATION
  Report Type: Spontaneous
  Country: CO (occurrence: US)
  Receive Date: 20170418
  Receipt Date: 20170418
  Transmission Date: 20170830
  Serious: Yes (Other)
  Sender: FDA-Public Use
  Company Number: None

PATIENT
  Age: 61 Year
  Sex: Male
  Weight: 78 kg

DRUGS (1)
  1. COUMADIN [Suspect]
     Active Substance: WARFARIN SODIUM
     Indication: PORTAL VEIN THROMBOSIS
     Dosage: ?          QUANTITY:30 TABLET(S);?
     Dates: start: 20161015, end: 20170408

REACTIONS (3)
  - Vitamin D decreased [None]
  - Blood creatinine increased [None]
  - Myalgia [None]

NARRATIVE: CASE EVENT DATE: 20161015
